FAERS Safety Report 4688156-7 (Version None)
Quarter: 2005Q2

REPORT INFORMATION
  Report Type: 
  Country: None (occurrence: None)
  Receive Date: 20050610
  Receipt Date: 20050425
  Transmission Date: 20051028
  Serious: Yes (Other)
  Sender: FDA-Public Use
  Company Number: PHEH2005US04825

PATIENT
  Age: 70 Year
  Sex: Female

DRUGS (26)
  1. ZOMETA [Suspect]
     Indication: BREAST CANCER METASTATIC
     Dosage: 4MG Q3-4 WKS
     Route: 042
     Dates: start: 20020408
  2. ATROVENT [Concomitant]
  3. ALBUTEROL [Concomitant]
  4. MS CONTIN [Concomitant]
  5. SENNA [Concomitant]
  6. COLACE [Concomitant]
  7. IRON [Concomitant]
  8. CALCIUM WITH VITAMIN D [Concomitant]
  9. NEUTRA-PHOS [Concomitant]
  10. MS CONTIN [Concomitant]
  11. PREVACID [Concomitant]
  12. ARANESP [Concomitant]
  13. COMPAZINE [Concomitant]
  14. DOXYCYCLINE [Concomitant]
     Dosage: 100 MG UNK
  15. LOMOTIL [Concomitant]
  16. POTASSIUM CHLORIDE [Concomitant]
  17. CYCLOPHOSPHAMIDE [Concomitant]
     Dates: start: 19920101
  18. METHOTREXATE [Concomitant]
     Dates: start: 19920101
  19. FLUOROURACIL [Concomitant]
     Dates: start: 19920101
  20. HERCEPTIN [Concomitant]
     Dates: start: 20010701, end: 20011101
  21. HERCEPTIN [Concomitant]
     Dates: start: 20011201
  22. HERCEPTIN [Concomitant]
     Dates: start: 20050201
  23. LETROZOLE [Concomitant]
     Dates: start: 20021101
  24. FASLODEX [Concomitant]
     Dates: start: 20050201
  25. NAVELBINE [Concomitant]
     Dates: start: 20010701, end: 20011101
  26. NAVELBINE [Concomitant]
     Dates: start: 20040701, end: 20050110

REACTIONS (9)
  - ASEPTIC NECROSIS BONE [None]
  - BONE DISORDER [None]
  - HYPOTHYROIDISM [None]
  - IMPAIRED HEALING [None]
  - OSTEONECROSIS [None]
  - PAIN IN JAW [None]
  - TOOTH ABSCESS [None]
  - TOOTH DISORDER [None]
  - TOOTH EXTRACTION [None]
